FAERS Safety Report 6772715-1 (Version None)
Quarter: 2010Q2

REPORT INFORMATION
  Report Type: 
  Country: None (occurrence: None)
  Receive Date: 20100614
  Receipt Date: 20100531
  Transmission Date: 20101027
  Serious: Yes (Hospitalization)
  Sender: FDA-Public Use
  Company Number: 012255

PATIENT
  Sex: Female

DRUGS (21)
  1. CERTOLIZUMAB PEGOL (CERTOLIZUMAB PEGOL) [Suspect]
     Indication: RHEUMATOID ARTHRITIS
     Dosage: 200 MG 1 X 2 WEEKS, SUBCUTANEOUS
     Route: 058
     Dates: start: 20100408
  2. PREDNISOLONE [Suspect]
     Indication: RHEUMATOID ARTHRITIS
     Dosage: 3 MG ORAL
     Route: 048
     Dates: start: 20080922
  3. DICLOFENAC SODIUM [Suspect]
     Indication: RHEUMATOID ARTHRITIS
     Dosage: 100 MG RECTAL
     Route: 054
     Dates: start: 20091129
  4. LORFENAMIN (LORFENAMIN) (NOT SPECIFIED) [Suspect]
     Indication: RHEUMATOID ARTHRITIS
     Dosage: 180 MG ORAL
     Route: 048
     Dates: start: 20091130
  5. ISCOTIN /00030201/ (ISCOTIN) [Suspect]
     Indication: ANTIBIOTIC PROPHYLAXIS
     Dosage: 300 MG ORAL
     Route: 048
     Dates: start: 20091217
  6. OMEPRAL /00661201/ (OMEPRAL) [Suspect]
     Indication: PROPHYLAXIS
     Dosage: 10 MG ORAL
     Route: 048
     Dates: start: 20100325
  7. DIFENIDOL HYDROCHLORIDE (DIFENIDOLIN) [Suspect]
     Indication: VERTIGO
     Dosage: 75 MG ORAL
     Route: 048
     Dates: start: 20081006
  8. MERCAZOLE (MERCAZOLE) [Suspect]
     Indication: BASEDOW'S DISEASE
     Dosage: 5 MG ORAL
     Route: 048
     Dates: start: 20080707
  9. DIOVAN [Suspect]
     Indication: HYPERTENSION
     Dosage: 40 MG ORAL
     Route: 048
     Dates: start: 20080130
  10. LUVOX [Suspect]
     Indication: DEPRESSION
     Dosage: 100 MG, ORAL (50 MG ORAL)
     Dates: start: 20080130
  11. LUVOX [Suspect]
     Indication: DEPRESSION
     Dosage: 100 MG, ORAL (50 MG ORAL)
     Dates: start: 20100406
  12. MEDIPEACE (MEDIPEACE) [Suspect]
     Indication: DEPRESSION
     Dosage: 3 MG ORAL
     Route: 048
     Dates: start: 20100406
  13. AMLODIPINE [Suspect]
     Indication: HYPERTENSION
     Dosage: 5 MG ORAL
     Route: 048
     Dates: start: 20100406
  14. MEVAN /00880402/ (MEVAN) (NOT SPECIFIED) [Suspect]
     Indication: HYPERCHOLESTEROLAEMIA
     Dosage: 10 MG ORAL
     Route: 048
     Dates: start: 20100406
  15. MYSLEE (MYSLEE [Suspect]
     Indication: DEPRESSION
     Dosage: 10 MG ORAL
     Route: 048
     Dates: start: 20100406
  16. MUCOSTA (MUCOSTA TABLETS) [Suspect]
     Indication: PROPHYLAXIS
     Dosage: 300 MG ORAL
     Route: 048
     Dates: start: 20091130
  17. ABILIFY [Suspect]
     Indication: DEPRESSION
     Dosage: 3 MG ORAL
     Dates: start: 20100406
  18. ALOSENN /00476901/ (ALOSENN) [Suspect]
     Indication: CONSTIPATION
     Dosage: 1 G QD ORAL
     Route: 048
     Dates: start: 20100517
  19. LEVOFLOXACIN [Suspect]
     Indication: CYSTITIS
     Dosage: 3 MG QD ORAL
     Route: 048
     Dates: start: 20100524
  20. SODIUM PICOSULFATE (SODIUM PICOSULFATE) [Suspect]
     Indication: CONSTIPATION
     Dosage: ORAL
     Route: 048
     Dates: start: 20100521
  21. KETOCONAZOLE [Suspect]
     Indication: TINEA INFECTION
     Dosage: TRANSDERMAL
     Route: 062
     Dates: start: 20100527

REACTIONS (10)
  - ARTERIOSCLEROSIS [None]
  - ARTHRALGIA [None]
  - BLOOD PRESSURE SYSTOLIC INCREASED [None]
  - BODY TEMPERATURE INCREASED [None]
  - BRAIN STEM HAEMORRHAGE [None]
  - DEPRESSED LEVEL OF CONSCIOUSNESS [None]
  - GAIT DISTURBANCE [None]
  - HAEMORRHAGIC DIATHESIS [None]
  - MENISCUS LESION [None]
  - SNORING [None]
